FAERS Safety Report 6211624-3 (Version None)
Quarter: 2009Q2

REPORT INFORMATION
  Report Type: 
  Country: None (occurrence: None)
  Receive Date: 20090522
  Receipt Date: 20090330
  Transmission Date: 20091009
  Serious: No
  Sender: FDA-Public Use
  Company Number: 8044436

PATIENT
  Sex: Male

DRUGS (6)
  1. CIMZIA [Suspect]
     Dosage: SC
     Route: 058
  2. AUGMENTIN [Concomitant]
  3. PREDNISONE [Concomitant]
  4. PREVACID [Concomitant]
  5. LIPITOR [Concomitant]
  6. MERCAPTOPURINE [Concomitant]

REACTIONS (1)
  - UPPER RESPIRATORY TRACT INFECTION [None]
